FAERS Safety Report 10510930 (Version 1)
Quarter: 2014Q4

REPORT INFORMATION
  Report Type: Spontaneous
  Country: US (occurrence: US)
  Receive Date: 20141010
  Receipt Date: 20141010
  Transmission Date: 20150528
  Serious: No
  Sender: FDA-Public Use
  Company Number: US-ASTRAZENECA-2014SE72916

PATIENT
  Sex: Female
  Weight: 47.2 kg

DRUGS (3)
  1. ARIMIDEX [Suspect]
     Active Substance: ANASTROZOLE
     Indication: BREAST CANCER
     Route: 048
     Dates: start: 2013
  2. VITAMINS AND MINERALS [Concomitant]
     Dosage: EVERY DAY
     Route: 048
  3. PROLIA [Concomitant]
     Active Substance: DENOSUMAB
     Dosage: EVERY SIX MONTHS
     Route: 065

REACTIONS (8)
  - Blood cholesterol increased [Not Recovered/Not Resolved]
  - Back pain [Not Recovered/Not Resolved]
  - Insomnia [Not Recovered/Not Resolved]
  - Influenza like illness [Not Recovered/Not Resolved]
  - Body height decreased [Not Recovered/Not Resolved]
  - Depression [Not Recovered/Not Resolved]
  - Dizziness [Not Recovered/Not Resolved]
  - Alopecia [Not Recovered/Not Resolved]
